FAERS Safety Report 6735119-3 (Version None)
Quarter: 2010Q2

REPORT INFORMATION
  Report Type: 
  Country: None (occurrence: None)
  Receive Date: 20100521
  Receipt Date: 20100506
  Transmission Date: 20101027
  Serious: Yes (Other)
  Sender: FDA-Public Use
  Company Number: SE-MYLANLABS-2010S1008050

PATIENT
  Age: 56 Year
  Sex: Female

DRUGS (11)
  1. FLUOXETINE [Suspect]
     Indication: DRUG USE FOR UNKNOWN INDICATION
     Route: 048
     Dates: start: 20050101, end: 20050101
  2. FLUOXETINE [Suspect]
     Route: 048
     Dates: start: 20090801
  3. DICLOFENAC [Suspect]
     Indication: DRUG USE FOR UNKNOWN INDICATION
  4. TROMBYL [Suspect]
     Indication: DRUG USE FOR UNKNOWN INDICATION
  5. NASONEX [Concomitant]
     Indication: DRUG USE FOR UNKNOWN INDICATION
  6. OMEPRAZOLE [Concomitant]
     Indication: DRUG USE FOR UNKNOWN INDICATION
  7. ATARAX [Concomitant]
     Indication: DRUG USE FOR UNKNOWN INDICATION
  8. LEPHETON [Concomitant]
     Indication: DRUG USE FOR UNKNOWN INDICATION
  9. SOBRIL [Concomitant]
     Indication: DRUG USE FOR UNKNOWN INDICATION
  10. EMCONCOR [Concomitant]
     Indication: DRUG USE FOR UNKNOWN INDICATION
  11. VENTOLIN [Concomitant]
     Indication: DRUG USE FOR UNKNOWN INDICATION

REACTIONS (1)
  - VITREOUS HAEMORRHAGE [None]
